FAERS Safety Report 8874236 (Version 1)
Quarter: 2012Q4

REPORT INFORMATION
  Report Type: 
  Country: US (occurrence: US)
  Receive Date: 20121030
  Receipt Date: 20121030
  Transmission Date: 20130627
  Serious: Yes (Hospitalization)
  Sender: FDA-Public Use
  Company Number: US-ELI_LILLY_AND_COMPANY-US201210005224

PATIENT
  Sex: Female

DRUGS (13)
  1. BYETTA [Suspect]
     Indication: TYPE 2 DIABETES MELLITUS
     Dosage: 5 ug, bid
     Route: 058
     Dates: start: 2011
  2. BYETTA [Suspect]
     Dosage: 10 ug, bid
     Route: 058
  3. METFORMIN [Concomitant]
     Indication: TYPE 2 DIABETES MELLITUS
     Dosage: 1000 mg, qd
     Route: 048
     Dates: start: 2011, end: 201204
  4. METFORMIN [Concomitant]
     Dosage: 500 mg, qd
     Route: 058
     Dates: start: 201204
  5. LIPITOR [Concomitant]
     Dosage: 80 mg, qd
     Route: 048
  6. ATENOLOL [Concomitant]
     Indication: ARRHYTHMIA
     Dosage: 100 mg, qd
     Route: 048
  7. DIOVAN [Concomitant]
     Indication: HYPERTENSION
     Dosage: UNK, qd
  8. SYNTHROID [Concomitant]
     Indication: THYROID DISORDER
     Dosage: UNK, qd
  9. PROZAC [Concomitant]
     Indication: EMOTIONAL DISORDER
     Dosage: 40 mg, qd
     Route: 048
     Dates: end: 201209
  10. PROZAC [Concomitant]
     Dosage: 60 mg, qd
     Route: 048
     Dates: start: 201209
  11. MYLICON [Concomitant]
     Indication: ARTHRITIS
     Dosage: UNK, qd
  12. ANTACID                            /00751519/ [Concomitant]
     Indication: DYSPEPSIA
     Dosage: UNK
  13. ROLAIDS [Concomitant]
     Indication: DYSPEPSIA
     Dosage: UNK

REACTIONS (7)
  - Emotional disorder [Recovering/Resolving]
  - Blood glucose increased [Unknown]
  - Presyncope [Not Recovered/Not Resolved]
  - Headache [Not Recovered/Not Resolved]
  - Nausea [Not Recovered/Not Resolved]
  - Vomiting [Not Recovered/Not Resolved]
  - Blood glucose decreased [Unknown]
